FAERS Safety Report 8314975-1 (Version None)
Quarter: 2012Q2

REPORT INFORMATION
  Report Type: 
  Country: None (occurrence: None)
  Receive Date: 20120426
  Receipt Date: 20120104
  Transmission Date: 20120825
  Serious: No
  Sender: FDA-Public Use
  Company Number: US-MUTUAL PHARMACEUTICAL COMPANY, INC.-CLCY20120004

PATIENT
  Sex: Female
  Weight: 96.248 kg

DRUGS (2)
  1. COLCRYS [Suspect]
     Indication: GOUT
     Route: 048
     Dates: start: 20111001, end: 20111001
  2. LEVOTHYROXINE SODIUM [Concomitant]
     Route: 048

REACTIONS (4)
  - NAUSEA [None]
  - MUSCULAR WEAKNESS [None]
  - PARAESTHESIA [None]
  - HYPOAESTHESIA [None]
